FAERS Safety Report 8536530-0 (Version None)
Quarter: 2012Q3

REPORT INFORMATION
  Report Type: 
  Country: None (occurrence: None)
  Receive Date: 20120725
  Receipt Date: 20120718
  Transmission Date: 20120928
  Serious: Yes (Hospitalization)
  Sender: FDA-Public Use
  Company Number: IT-ROCHE-1070171

PATIENT
  Sex: Male

DRUGS (4)
  1. PREDNISONE [Concomitant]
     Dates: start: 20120123, end: 20120215
  2. SINESTIC [Concomitant]
     Dates: start: 20111122
  3. EBASTINE [Concomitant]
     Dates: start: 20111222
  4. XOLAIR [Suspect]
     Indication: ASTHMA
     Dosage: CYCLIC DOSE
     Route: 058
     Dates: start: 20111222

REACTIONS (1)
  - BRONCHITIS [None]
